FAERS Safety Report 4890920-6 (Version None)
Quarter: 2006Q1

REPORT INFORMATION
  Report Type: 
  Country: None (occurrence: None)
  Receive Date: 20060123
  Receipt Date: 20060116
  Transmission Date: 20060701
  Serious: Yes (Hospitalization)
  Sender: FDA-Public Use
  Company Number: SU-2006-004508

PATIENT
  Age: 45 Year
  Sex: Male

DRUGS (2)
  1. WELCHOL [Suspect]
     Indication: BLOOD CHOLESTEROL
     Dosage: MG, PO
     Route: 048
     Dates: start: 20051210, end: 20051225
  2. WELCHOL [Suspect]
     Indication: BLOOD TRIGLYCERIDES
     Dosage: MG, PO
     Route: 048
     Dates: start: 20051210, end: 20051225

REACTIONS (1)
  - PARAESTHESIA [None]
